FAERS Safety Report 16368576 (Version 4)
Quarter: 2020Q1

REPORT INFORMATION
  Report Type: Spontaneous
  Country: US (occurrence: US)
  Receive Date: 20190529
  Receipt Date: 20200326
  Transmission Date: 20200409
  Serious: Yes (Other)
  Sender: FDA-Public Use
  Company Number: US-ACTELION-A-NJ2019-190251

PATIENT
  Age: 70 Year
  Sex: Female
  Weight: 99.32 kg

DRUGS (6)
  1. UPTRAVI [Suspect]
     Active Substance: SELEXIPAG
     Dosage: UNK
     Route: 048
  2. GLIPIZIDE AND METFORMIN HCL [Concomitant]
     Active Substance: GLIPIZIDE\METFORMIN HYDROCHLORIDE
     Dosage: UNK
     Dates: start: 202001
  3. UPTRAVI [Suspect]
     Active Substance: SELEXIPAG
     Indication: PULMONARY HYPERTENSION
     Dosage: 1600 MCG, BID
     Route: 048
  4. UPTRAVI [Suspect]
     Active Substance: SELEXIPAG
     Dosage: 800 MCG, BID
     Route: 048
  5. METFORMIN [Concomitant]
     Active Substance: METFORMIN HYDROCHLORIDE
     Dosage: UNK
     Dates: end: 202001
  6. NIFEDIPINE. [Concomitant]
     Active Substance: NIFEDIPINE

REACTIONS (14)
  - Toe amputation [Unknown]
  - Pain [Unknown]
  - Vein disorder [Unknown]
  - Fall [Unknown]
  - Faeces soft [Not Recovered/Not Resolved]
  - Venous haemorrhage [Unknown]
  - Dizziness [Unknown]
  - Frequent bowel movements [Recovered/Resolved]
  - Peripheral swelling [Unknown]
  - Diarrhoea [Recovered/Resolved]
  - Tremor [Unknown]
  - Lymphadenectomy [Unknown]
  - Inflammation [Unknown]
  - Rib fracture [Unknown]

NARRATIVE: CASE EVENT DATE: 202001
